FAERS Safety Report 5021793-9 (Version None)
Quarter: 2006Q2

REPORT INFORMATION
  Report Type: 
  Country: None (occurrence: None)
  Receive Date: 20060605
  Receipt Date: 20060518
  Transmission Date: 20061013
  Serious: Yes (Life-Threatening, Hospitalization)
  Sender: FDA-Public Use
  Company Number: US200605003925

PATIENT
  Age: 20 Year
  Sex: Female
  Weight: 63.4 kg

DRUGS (5)
  1. ZYPREXA [Suspect]
     Dosage: 5 MG, DAILY (1/D), ORAL
     Route: 048
     Dates: start: 20051117
  2. LAMICTAL [Concomitant]
  3. LITHIUM (LITHIUM) [Concomitant]
  4. WELLBUTRIN [Concomitant]
  5. DEPAKOTE [Concomitant]

REACTIONS (13)
  - BACTERAEMIA [None]
  - DEPRESSION [None]
  - DYSPHAGIA [None]
  - FACE OEDEMA [None]
  - HALLUCINATION [None]
  - HYPOMANIA [None]
  - INSOMNIA [None]
  - MALAISE [None]
  - OBSTRUCTIVE AIRWAYS DISORDER [None]
  - PNEUMONIA [None]
  - STEVENS-JOHNSON SYNDROME [None]
  - SUICIDAL IDEATION [None]
  - THERAPY NON-RESPONDER [None]
